FAERS Safety Report 12615393 (Version 2)
Quarter: 2016Q3

REPORT INFORMATION
  Report Type: Spontaneous
  Country: US (occurrence: US)
  Receive Date: 20160802
  Receipt Date: 20160822
  Transmission Date: 20161109
  Serious: Yes (Hospitalization)
  Sender: FDA-Public Use
  Company Number: US-JNJFOC-20160723384

PATIENT
  Age: 60 Year
  Sex: Male
  Weight: 90.72 kg

DRUGS (9)
  1. REMICADE [Suspect]
     Active Substance: INFLIXIMAB
     Indication: CROHN^S DISEASE
     Route: 042
  2. MERCAPTOPURINE. [Concomitant]
     Active Substance: MERCAPTOPURINE
     Indication: CROHN^S DISEASE
     Route: 048
  3. ALLOPURINOL. [Concomitant]
     Active Substance: ALLOPURINOL
     Indication: CROHN^S DISEASE
     Route: 048
  4. REMICADE [Suspect]
     Active Substance: INFLIXIMAB
     Indication: CROHN^S DISEASE
     Route: 042
  5. REMICADE [Suspect]
     Active Substance: INFLIXIMAB
     Indication: CROHN^S DISEASE
     Route: 042
     Dates: start: 2008
  6. LIPITOR [Concomitant]
     Active Substance: ATORVASTATIN CALCIUM
     Indication: BLOOD CHOLESTEROL INCREASED
     Route: 048
     Dates: start: 2005
  7. REMICADE [Suspect]
     Active Substance: INFLIXIMAB
     Indication: CROHN^S DISEASE
     Route: 042
     Dates: start: 200701
  8. REMICADE [Suspect]
     Active Substance: INFLIXIMAB
     Indication: CROHN^S DISEASE
     Route: 042
  9. COUMADIN [Concomitant]
     Active Substance: WARFARIN SODIUM
     Indication: PULMONARY EMBOLISM
     Route: 048
     Dates: start: 201107

REACTIONS (12)
  - Pulmonary embolism [Unknown]
  - Product use issue [Unknown]
  - Hip arthroplasty [Unknown]
  - Arthritis enteropathic [Recovered/Resolved]
  - Arthropathy [Recovered/Resolved]
  - Knee arthroplasty [Unknown]
  - Impaired healing [Not Recovered/Not Resolved]
  - Weight decreased [Not Recovered/Not Resolved]
  - Complication associated with device [Recovered/Resolved]
  - Intramedullary rod insertion [Unknown]
  - Osteotomy [Unknown]
  - Off label use [Unknown]

NARRATIVE: CASE EVENT DATE: 2007
